FAERS Safety Report 10027570 (Version 1)
Quarter: 2014Q1

REPORT INFORMATION
  Report Type: Spontaneous
  Country: GB (occurrence: GB)
  Receive Date: 20140321
  Receipt Date: 20140321
  Transmission Date: 20141002
  Serious: Yes (Other)
  Sender: FDA-Public Use
  Company Number: PHHY2014GB029775

PATIENT
  Age: 46 Year
  Sex: Female
  Weight: 63.5 kg

DRUGS (2)
  1. METRONIDAZOLE [Suspect]
     Indication: GASTRITIS
     Dosage: 400 MG, UNK
     Route: 048
     Dates: start: 20140226, end: 20140228
  2. AMOXICILLIN [Concomitant]

REACTIONS (7)
  - Paraesthesia [Not Recovered/Not Resolved]
  - Chest pain [Not Recovered/Not Resolved]
  - Confusional state [Recovering/Resolving]
  - Myalgia [Not Recovered/Not Resolved]
  - Nausea [Recovering/Resolving]
  - Tremor [Recovered/Resolved]
  - Diarrhoea [Not Recovered/Not Resolved]
